FAERS Safety Report 15470762 (Version 1)
Quarter: 2018Q4

REPORT INFORMATION
  Report Type: Other
  Country: US (occurrence: US)
  Receive Date: 20181005
  Receipt Date: 20181005
  Transmission Date: 20190205
  Serious: Yes (Death)
  Sender: FDA-Public Use
  Company Number: US-INTELLIPHARMACEUTICS CORP.-2055736

PATIENT
  Age: 13 Year
  Sex: Female

DRUGS (2)
  1. QUETIAPINE FUMARATE. [Suspect]
     Active Substance: QUETIAPINE FUMARATE
     Indication: PRODUCT USED FOR UNKNOWN INDICATION
     Route: 065
  2. ACETAMINOPHEN. [Suspect]
     Active Substance: ACETAMINOPHEN
     Route: 065

REACTIONS (10)
  - Toxicity to various agents [Fatal]
  - Coma [Fatal]
  - Acute respiratory distress syndrome [Fatal]
  - Metabolic acidosis [Fatal]
  - Anion gap [Fatal]
  - Acute kidney injury [Fatal]
  - Depressed level of consciousness [Fatal]
  - Hypotension [Fatal]
  - Death [Fatal]
  - Acute lung injury [Fatal]
